FAERS Safety Report 18162616 (Version 1)
Quarter: 2020Q3

REPORT INFORMATION
  Report Type: Spontaneous
  Country: US (occurrence: US)
  Receive Date: 20200818
  Receipt Date: 20200818
  Transmission Date: 20201103
  Serious: No
  Sender: FDA-Public Use
  Company Number: US-PFIZER INC-2020315769

PATIENT
  Age: 61 Year
  Sex: Female
  Weight: 86.17 kg

DRUGS (2)
  1. PANTOPRAZOLE [Suspect]
     Active Substance: PANTOPRAZOLE
     Dosage: UNK
  2. XARELTO [Concomitant]
     Active Substance: RIVAROXABAN
     Indication: THROMBOSIS
     Dosage: UNK
     Dates: start: 202006

REACTIONS (2)
  - Abdominal discomfort [Unknown]
  - Diarrhoea [Unknown]
